FAERS Safety Report 6640696-7 (Version None)
Quarter: 2010Q1

REPORT INFORMATION
  Report Type: 
  Country: None (occurrence: None)
  Receive Date: 20100318
  Receipt Date: 20100305
  Transmission Date: 20100710
  Serious: Yes (Other)
  Sender: FDA-Public Use
  Company Number: US-ELI_LILLY_AND_COMPANY-US201001002647

PATIENT
  Sex: Male
  Weight: 113.38 kg

DRUGS (17)
  1. BYETTA [Suspect]
     Dosage: 5 UG, EACH MORNING
     Route: 058
     Dates: start: 20060523, end: 20080919
  2. BYETTA [Suspect]
     Dosage: 10 UG, EACH EVENING
     Route: 058
     Dates: start: 20060523, end: 20080919
  3. METFORMIN HYDROCHLORIDE [Concomitant]
     Dosage: 500 MG, 2/D
  4. GABAPENTIN [Concomitant]
     Dosage: 300 MG, 3/D
  5. ETODOLAC [Concomitant]
     Dosage: 600 MG, UNK
  6. VARDENAFIL [Concomitant]
     Dosage: UNK, AS NEEDED
  7. ATENOLOL [Concomitant]
     Dosage: 50 MG, DAILY (1/D)
  8. COZAAR [Concomitant]
     Dosage: 100 MG, UNK
  9. HUMALOG [Concomitant]
     Dosage: UNK, AS NEEDED
  10. LANTUS [Concomitant]
  11. WELCHOL [Concomitant]
     Dosage: UNK, 2/D
  12. ZETIA [Concomitant]
     Dosage: 10 MG, DAILY (1/D)
  13. SAW PALMETTO [Concomitant]
  14. ASTELIN [Concomitant]
  15. STRATTERA [Concomitant]
  16. RITALIN [Concomitant]
     Dosage: 20 MG, 2/D
  17. CIALIS [Concomitant]

REACTIONS (2)
  - OFF LABEL USE [None]
  - PANCREATITIS ACUTE [None]
